FAERS Safety Report 10652443 (Version 3)
Quarter: 2015Q1

REPORT INFORMATION
  Report Type: Spontaneous
  Country: US (occurrence: None)
  Receive Date: 20141211
  Receipt Date: 20150224
  Transmission Date: 20150720
  Serious: Yes (Hospitalization)
  Sender: FDA-Public Use
  Company Number: CIO14072500

PATIENT
  Age: 45 Year
  Sex: Male
  Weight: 127.9 kg

DRUGS (1)
  1. CREST PRO-HEALTH MULTI-PROTECTION REFRESHING CLEAN MINT [Suspect]
     Active Substance: CETYLPYRIDINIUM CHLORIDE
     Dosage: SWALLOWED RINSE, POSSIBLY SWALLOWING THE MOUTHWASH FOR THE LAST 10 YEARS??
     Route: 048
     Dates: end: 20141017

REACTIONS (9)
  - Seizure [None]
  - Gastric disorder [None]
  - Abdominal discomfort [None]
  - Oesophageal discomfort [None]
  - Abnormal behaviour [None]
  - Accidental exposure to product [None]
  - Exposure via ingestion [None]
  - Cough [None]
  - Incorrect drug administration duration [None]

NARRATIVE: CASE EVENT DATE: 201410
